FAERS Safety Report 8696972 (Version 3)
Quarter: 2012Q4

REPORT INFORMATION
  Report Type: 
  Country: GR (occurrence: GR)
  Receive Date: 20120801
  Receipt Date: 20121019
  Transmission Date: 20130627
  Serious: Yes (Death, Hospitalization, Disabling)
  Sender: FDA-Public Use
  Company Number: GR-PFIZER INC-2012183307

PATIENT
  Age: 61 Year
  Sex: Female

DRUGS (5)
  1. SUTENT [Suspect]
     Indication: METASTATIC RENAL CELL CARCINOMA
     Dosage: 50 mg, 1x/day (4 weeks on/ 2 weeks off)
     Route: 048
     Dates: start: 20120516, end: 20120613
  2. SUTENT [Suspect]
     Dosage: 50 mg, 1x/day (4 weeks on/ 2 weeks off)
     Route: 048
     Dates: start: 20120627, end: 20120723
  3. LIPITOR [Concomitant]
     Dosage: 10 mg, 1x/day
     Route: 048
  4. T4 [Concomitant]
     Dosage: 75 micrograms, 1x/day
     Route: 048
  5. FLAGYL [Concomitant]
     Dosage: UNK
     Route: 048

REACTIONS (8)
  - Cardiogenic shock [Fatal]
  - Cardiac failure acute [Not Recovered/Not Resolved]
  - Renal failure acute [Not Recovered/Not Resolved]
  - Hepatic failure [Not Recovered/Not Resolved]
  - Thrombocytopenia [Not Recovered/Not Resolved]
  - Diarrhoea [Unknown]
  - Fatigue [Unknown]
  - Vulvovaginitis trichomonal [Unknown]
